FAERS Safety Report 9369949 (Version 2)
Quarter: 2013Q3

REPORT INFORMATION
  Report Type: Report from Study
  Country: UA (occurrence: UA)
  Receive Date: 20130626
  Receipt Date: 20130710
  Transmission Date: 20140515
  Serious: Yes (Hospitalization)
  Sender: FDA-Public Use
  Company Number: UA-ROCHE-1238782

PATIENT
  Age: 43 Year
  Sex: Female
  Weight: 59 kg

DRUGS (7)
  1. TRASTUZUMAB [Suspect]
     Indication: HER-2 POSITIVE BREAST CANCER
     Dosage: LOADING DOSE, LAST DOSE PRIOR TO SAE ON 21 MAY 2013
     Route: 042
     Dates: start: 20130521
  2. DOCETAXEL [Suspect]
     Indication: HER-2 POSITIVE BREAST CANCER
     Dosage: LAST DOSE PRIOR TO SAE ON 21 MAY 2013
     Route: 042
     Dates: start: 20130521
  3. EPIRUBICIN [Suspect]
     Indication: HER-2 POSITIVE BREAST CANCER
     Dosage: LAST DOSE PRIOR TO EVENT ON 29/APR/2013
     Route: 042
     Dates: start: 20130211
  4. CYCLOPHOSPHAMIDE [Suspect]
     Indication: HER-2 POSITIVE BREAST CANCER
     Dosage: LAST DOSE PRIOR TO EVENT ON 29/APR/2013
     Route: 042
     Dates: start: 20130211
  5. FLUCONAZOLE [Concomitant]
     Route: 065
     Dates: start: 20130531, end: 20130531
  6. FILSTIM [Concomitant]
     Dosage: TOTAL DAILY DOSE: 48 MU
     Route: 065
     Dates: start: 20130531, end: 20130531
  7. PERTUZUMAB [Suspect]
     Indication: HER-2 POSITIVE BREAST CANCER
     Dosage: LOADING DOSE
     Route: 042
     Dates: start: 20130521

REACTIONS (2)
  - Nasal oedema [Recovered/Resolved]
  - Oedema mouth [Recovered/Resolved]
